FAERS Safety Report 20119387 (Version 2)
Quarter: 2021Q4

REPORT INFORMATION
  Report Type: Spontaneous
  Country: KR (occurrence: KR)
  Receive Date: 20211126
  Receipt Date: 20211206
  Transmission Date: 20220303
  Serious: Yes (Other)
  Sender: FDA-Public Use
  Company Number: KR-PFIZER INC-202101572455

PATIENT
  Age: 71 Year
  Sex: Male
  Weight: 55 kg

DRUGS (6)
  1. DONEPEZIL HYDROCHLORIDE [Interacting]
     Active Substance: DONEPEZIL HYDROCHLORIDE
     Dosage: 5 MG, 2X/DAY
  2. ROCURONIUM BROMIDE [Interacting]
     Active Substance: ROCURONIUM BROMIDE
     Dosage: 50 MG (0.9 MG/KG). DURING 195 MIN
  3. ROCURONIUM BROMIDE [Interacting]
     Active Substance: ROCURONIUM BROMIDE
     Dosage: 60 MG DURING 225 MIN
  4. ROCURONIUM BROMIDE [Interacting]
     Active Substance: ROCURONIUM BROMIDE
     Dosage: ADDITIONAL BOLUS INJECTION OF ROCURONIUM 10 MG (0.18 MG/KG) UNK
  5. DESFLURANE [Concomitant]
     Active Substance: DESFLURANE
     Dosage: UNK, 4-6 VOL%
     Route: 045
  6. CISATRACURIUM [Concomitant]
     Active Substance: CISATRACURIUM
     Dosage: 6 MG

REACTIONS (2)
  - Anaesthetic complication [Unknown]
  - Drug interaction [Unknown]
